FAERS Safety Report 6960771-7 (Version None)
Quarter: 2010Q3

REPORT INFORMATION
  Report Type: 
  Country: None (occurrence: None)
  Receive Date: 20100901
  Receipt Date: 20100820
  Transmission Date: 20110219
  Serious: Yes (Hospitalization)
  Sender: FDA-Public Use
  Company Number: DE-ROCHE-720117

PATIENT
  Sex: Female
  Weight: 54 kg

DRUGS (3)
  1. PEGINTERFERON ALFA-2A [Suspect]
     Indication: HEPATITIS C
     Dosage: DOSAGE FORM: UNKNOWN.
     Route: 058
     Dates: start: 20091120
  2. RIBAVIRIN [Suspect]
     Indication: HEPATITIS C
     Dosage: 600 MG IN THE MORNING AND 400 IN THE EVENING.
     Route: 048
     Dates: start: 20091120
  3. BLINDED TMC435 [Suspect]
     Indication: HEPATITIS C
     Dosage: DOSE BLINDED
     Route: 048
     Dates: start: 20091120

REACTIONS (1)
  - MIGRAINE [None]
